FAERS Safety Report 10172167 (Version 3)
Quarter: 2014Q2

REPORT INFORMATION
  Report Type: Spontaneous
  Country: US (occurrence: US)
  Receive Date: 20140515
  Receipt Date: 20140611
  Transmission Date: 20141212
  Serious: Yes (Other)
  Sender: FDA-Public Use
  Company Number: CHPA2014US006176

PATIENT
  Age: 84 Year
  Sex: Female

DRUGS (2)
  1. VOLTAREN GEL [Suspect]
     Indication: ARTHRITIS
     Dosage: 4 G, QD
     Route: 061
     Dates: start: 2012
  2. PROTONIX [Concomitant]
     Indication: GASTROOESOPHAGEAL REFLUX DISEASE

REACTIONS (4)
  - Meniscus injury [Not Recovered/Not Resolved]
  - Pain [Unknown]
  - Therapeutic response decreased [Unknown]
  - Underdose [Unknown]
